FAERS Safety Report 22329409 (Version 2)
Quarter: 2023Q2

REPORT INFORMATION
  Report Type: Report from Study
  Country: AU (occurrence: AU)
  Receive Date: 20230517
  Receipt Date: 20230522
  Transmission Date: 20230722
  Serious: Yes (Hospitalization)
  Sender: FDA-Public Use
  Company Number: AU-ABBVIE-4768702

PATIENT
  Sex: Male

DRUGS (3)
  1. CARBIDOPA\LEVODOPA [Suspect]
     Active Substance: CARBIDOPA\LEVODOPA
     Indication: Parkinson^s disease
     Route: 050
  2. CARBIDOPA\LEVODOPA [Suspect]
     Active Substance: CARBIDOPA\LEVODOPA
  3. Coloxyl [Concomitant]
     Indication: Bowel movement irregularity
     Dosage: 2-4 MONDAY - WEDNESDAY- FRIDAY
     Route: 048

REACTIONS (3)
  - Device dislocation [Recovered/Resolved]
  - Embedded device [Recovered/Resolved]
  - Gastric fistula [Recovered/Resolved]
